FAERS Safety Report 24078025 (Version 1)
Quarter: 2024Q3

REPORT INFORMATION
  Report Type: Spontaneous
  Country: US (occurrence: US)
  Receive Date: 20240711
  Receipt Date: 20240711
  Transmission Date: 20241016
  Serious: No
  Sender: SANDOZ
  Company Number: US-002147023-NVSC2023US219248

PATIENT
  Sex: Female

DRUGS (3)
  1. AMOXICILLIN [Suspect]
     Active Substance: AMOXICILLIN
     Indication: Product used for unknown indication
     Dosage: UNK
     Route: 065
  2. COSENTYX [Suspect]
     Active Substance: SECUKINUMAB
     Indication: Psoriasis
     Dosage: 300 MG
     Route: 059
  3. ELIDEL [Suspect]
     Active Substance: PIMECROLIMUS
     Indication: Psoriasis
     Dosage: UNK
     Route: 065

REACTIONS (15)
  - Product monitoring error [Unknown]
  - Erythema [Unknown]
  - Skin papilloma [Unknown]
  - Dermatitis [Unknown]
  - Skin plaque [Unknown]
  - Skin exfoliation [Unknown]
  - Drug ineffective [Unknown]
  - Hepatic steatosis [Unknown]
  - Papule [Unknown]
  - Psoriasis [Unknown]
  - Nail dystrophy [Recovered/Resolved]
  - Nail psoriasis [Unknown]
  - Guttate psoriasis [Unknown]
  - Acrochordon [Unknown]
  - Stress [Unknown]
